FAERS Safety Report 4765552-0 (Version None)
Quarter: 2005Q3

REPORT INFORMATION
  Report Type: 
  Country: None (occurrence: None)
  Receive Date: 20050906
  Receipt Date: 20050818
  Transmission Date: 20060218
  Serious: Yes (Hospitalization, Other)
  Sender: FDA-Public Use
  Company Number: EWC050744947

PATIENT
  Age: 58 Year
  Sex: Female

DRUGS (1)
  1. ZYPREXA [Suspect]
     Indication: SCHIZOPHRENIA
     Dates: end: 20050211

REACTIONS (13)
  - BALANCE DISORDER [None]
  - BLINDNESS UNILATERAL [None]
  - CONDITION AGGRAVATED [None]
  - DRUG LEVEL INCREASED [None]
  - FALL [None]
  - HEADACHE [None]
  - INTRAOCULAR PRESSURE TEST ABNORMAL [None]
  - MENTAL DISORDER [None]
  - MOTOR DYSFUNCTION [None]
  - PAIN IN EXTREMITY [None]
  - PUPILLARY LIGHT REFLEX TESTS ABNORMAL [None]
  - SHOULDER PAIN [None]
  - UPPER LIMB FRACTURE [None]
